FAERS Safety Report 20819305 (Version 1)
Quarter: 2022Q2

REPORT INFORMATION
  Report Type: Spontaneous
  Country: IN (occurrence: IN)
  Receive Date: 20220512
  Receipt Date: 20220512
  Transmission Date: 20220721
  Serious: Yes (Hospitalization)
  Sender: FDA-Public Use
  Company Number: IN-MYLANLABS-2022M1034919

PATIENT
  Age: 2 Year
  Sex: Female

DRUGS (1)
  1. LEVOTHYROXINE [Suspect]
     Active Substance: LEVOTHYROXINE
     Indication: Product used for unknown indication
     Dosage: THE PATIENT RECEIVED ACCIDENTAL INGESTION..
     Route: 065

REACTIONS (4)
  - Irritability [Recovered/Resolved]
  - Psychomotor hyperactivity [Unknown]
  - Accidental overdose [Unknown]
  - Accidental exposure to product by child [Unknown]
